FAERS Safety Report 14631068 (Version 1)
Quarter: 2018Q1

REPORT INFORMATION
  Report Type: Spontaneous
  Country: US (occurrence: US)
  Receive Date: 20180313
  Receipt Date: 20180313
  Transmission Date: 20180509
  Serious: No
  Sender: FDA-Public Use
  Company Number: US-TEVA-756119USA

PATIENT
  Sex: Female
  Weight: 15 kg

DRUGS (1)
  1. AMOXICILLIN. [Suspect]
     Active Substance: AMOXICILLIN
     Dosage: 400 MG/5 ML
     Route: 048
     Dates: start: 20170326

REACTIONS (6)
  - Vomiting [Unknown]
  - Weight decreased [Unknown]
  - Pruritus [Unknown]
  - Drug ineffective [Unknown]
  - Decreased appetite [Unknown]
  - Rash generalised [Unknown]

NARRATIVE: CASE EVENT DATE: 20170326
